FAERS Safety Report 8423086-6 (Version None)
Quarter: 2012Q2

REPORT INFORMATION
  Report Type: 
  Country: None (occurrence: None)
  Receive Date: 20120608
  Receipt Date: 20120604
  Transmission Date: 20120825
  Serious: Yes (Death, Hospitalization)
  Sender: FDA-Public Use
  Company Number: FR-ASTRAZENECA-2012SE37373

PATIENT
  Age: 23493 Day
  Sex: Male

DRUGS (11)
  1. BRONCHOKOD [Suspect]
     Indication: BRONCHIAL DISORDER
     Route: 065
     Dates: start: 20120307, end: 20120313
  2. ACETAMINOPHEN W/ CODEINE [Suspect]
     Indication: SCIATICA
     Route: 065
     Dates: start: 20120207, end: 20120214
  3. ACETYLCYSTEINE [Suspect]
     Indication: BRONCHIAL DISORDER
     Route: 045
     Dates: start: 20120307, end: 20120313
  4. MEDROL [Concomitant]
     Dates: start: 20120319, end: 20120321
  5. AUGMENTIN [Suspect]
     Indication: BRONCHIAL DISORDER
     Route: 048
     Dates: start: 20120307, end: 20120314
  6. TEMAZEPAM [Suspect]
     Indication: SCIATICA
     Route: 065
     Dates: start: 20120201, end: 20120313
  7. VOLTAREN [Suspect]
     Indication: SCIATICA
     Route: 065
     Dates: start: 20120207, end: 20120214
  8. CLARITIN [Concomitant]
     Dates: start: 20120319, end: 20120321
  9. PREDNISOLONE [Suspect]
     Indication: SCIATICA
     Route: 065
     Dates: start: 20120201, end: 20120313
  10. CHIBROCADRON [Concomitant]
     Dates: start: 20120319, end: 20120321
  11. NEXIUM [Suspect]
     Indication: SCIATICA
     Route: 048
     Dates: start: 20120207, end: 20120313

REACTIONS (6)
  - SKIN LESION [None]
  - TOXIC EPIDERMAL NECROLYSIS [None]
  - PYREXIA [None]
  - MUCOSAL INFLAMMATION [None]
  - GENERAL PHYSICAL HEALTH DETERIORATION [None]
  - PAIN IN EXTREMITY [None]
